FAERS Safety Report 9735034 (Version 7)
Quarter: 2014Q1

REPORT INFORMATION
  Report Type: Report from Study
  Country: FR (occurrence: FR)
  Receive Date: 20131206
  Receipt Date: 20140326
  Transmission Date: 20141002
  Serious: Yes (Death)
  Sender: FDA-Public Use
  Company Number: FR-CELGENEUS-056-C4047-13104958

PATIENT
  Age: 43 Year
  Sex: Male
  Weight: 79 kg

DRUGS (10)
  1. CC-4047 [Suspect]
     Indication: PLASMA CELL MYELOMA
     Dosage: 4 MILLIGRAM
     Route: 048
     Dates: start: 20130502, end: 20130715
  2. CC-4047 [Suspect]
     Dosage: 4 MILLIGRAM
     Route: 048
     Dates: start: 20130115
  3. DEXAMETHASONE [Concomitant]
     Indication: PLASMA CELL MYELOMA
     Route: 041
     Dates: start: 20030610, end: 20030808
  4. DEXAMETHASONE [Concomitant]
     Route: 065
     Dates: start: 20091006, end: 20100304
  5. DEXAMETHASONE [Concomitant]
     Route: 065
  6. KARDEGIC [Concomitant]
     Indication: PROPHYLAXIS
     Route: 065
  7. CLAMOXYL [Concomitant]
     Indication: PROPHYLAXIS
     Dosage: 2 GRAM
     Route: 065
  8. NOPRAL [Concomitant]
     Indication: PROPHYLAXIS
     Route: 065
  9. DIFFU K [Concomitant]
     Indication: PROPHYLAXIS
     Route: 065
  10. AVLOCARDYL [Concomitant]
     Indication: PROPHYLAXIS
     Route: 065

REACTIONS (1)
  - Plasma cell myeloma [Fatal]
